FAERS Safety Report 5834435-7 (Version None)
Quarter: 2008Q3

REPORT INFORMATION
  Report Type: 
  Country: None (occurrence: None)
  Receive Date: 20080722
  Receipt Date: 20080206
  Transmission Date: 20090109
  Serious: Yes (Hospitalization)
  Sender: FDA-Public Use
  Company Number: 2008BI003152

PATIENT
  Age: 36 Year
  Sex: Female
  Weight: 111.1313 kg

DRUGS (2)
  1. AVONEX [Suspect]
     Indication: MULTIPLE SCLEROSIS
     Dosage: 30 UG;QW;IM   30 UG;QW;IM
     Route: 030
     Dates: start: 20021207, end: 20030101
  2. AVONEX [Suspect]
     Indication: MULTIPLE SCLEROSIS
     Dosage: 30 UG;QW;IM   30 UG;QW;IM
     Route: 030
     Dates: start: 20030101

REACTIONS (9)
  - CONTUSION [None]
  - DYSSTASIA [None]
  - FALL [None]
  - HYPOAESTHESIA [None]
  - MULTIPLE SCLEROSIS RELAPSE [None]
  - PERIORBITAL HAEMATOMA [None]
  - PYREXIA [None]
  - VITAMIN B COMPLEX DEFICIENCY [None]
  - VOMITING [None]
